FAERS Safety Report 20352385 (Version 1)
Quarter: 2022Q1

REPORT INFORMATION
  Report Type: Spontaneous
  Country: US (occurrence: None)
  Receive Date: 20220118
  Receipt Date: 20220118
  Transmission Date: 20220424
  Serious: Yes (Other)
  Sender: FDA-Public Use
  Company Number: None

PATIENT
  Age: 39 Year
  Sex: Female
  Weight: 94.3 kg

DRUGS (6)
  1. DIMETHYL FUMARATE [Suspect]
     Active Substance: DIMETHYL FUMARATE
     Indication: Multiple sclerosis
     Dosage: FREQUENCY : TWICE A DAY;?
     Route: 048
     Dates: start: 20211230
  2. chlorthalidone 25mg tab [Concomitant]
     Dates: start: 20211006
  3. Vitamin D 5000 units [Concomitant]
  4. lisinopril 20mg bid [Concomitant]
     Dates: start: 20211006
  5. prednisone 20mg bid for 5 days [Concomitant]
     Dates: start: 20211227, end: 20220101
  6. setlakin 0.15mg-30mcg [Concomitant]
     Dates: start: 20220112

REACTIONS (4)
  - Flushing [None]
  - Diarrhoea [None]
  - Rash [None]
  - Pain [None]

NARRATIVE: CASE EVENT DATE: 20220118
